FAERS Safety Report 6033877-7 (Version None)
Quarter: 2009Q1

REPORT INFORMATION
  Report Type: 
  Country: None (occurrence: None)
  Receive Date: 20090109
  Receipt Date: 20090109
  Transmission Date: 20090719
  Serious: Yes (Disabling, Other)
  Sender: FDA-Public Use
  Company Number: None

PATIENT
  Age: 24 Year
  Sex: Male
  Weight: 66.36 kg

DRUGS (1)
  1. GAMMAGARD LIQUID [Suspect]
     Indication: IMMUNODEFICIENCY COMMON VARIABLE
     Dosage: 20G IN 200 ML ONE DAY PER MONTH IV ONCE Q2WEEKS
     Route: 042
     Dates: end: 20090102

REACTIONS (6)
  - BACK PAIN [None]
  - CHILLS [None]
  - FEELING COLD [None]
  - INFUSION RELATED REACTION [None]
  - PAIN IN EXTREMITY [None]
  - TREMOR [None]
